FAERS Safety Report 15408461 (Version 1)
Quarter: 2018Q3

REPORT INFORMATION
  Report Type: Spontaneous
  Country: US (occurrence: US)
  Receive Date: 20180920
  Receipt Date: 20180920
  Transmission Date: 20181010
  Serious: No
  Sender: FDA-Public Use
  Company Number: US-TARO-2018TAR00191

PATIENT
  Age: 94 Year
  Sex: Male
  Weight: 74.83 kg

DRUGS (1)
  1. CLOTRIMAZOLE TOPICAL SOLUTION USP 1% [Suspect]
     Active Substance: CLOTRIMAZOLE
     Indication: EAR INFECTION FUNGAL
     Dosage: 4 GTT, ONCE
     Route: 001
     Dates: start: 20180302, end: 20180302

REACTIONS (2)
  - Ear pain [Recovered/Resolved]
  - Off label use [Recovered/Resolved]

NARRATIVE: CASE EVENT DATE: 20180302
